FAERS Safety Report 23257398 (Version 1)
Quarter: 2023Q4

REPORT INFORMATION
  Report Type: Spontaneous
  Country: US (occurrence: None)
  Receive Date: 20231201
  Receipt Date: 20231201
  Transmission Date: 20240110
  Serious: Yes (Hospitalization)
  Sender: FDA-Public Use
  Company Number: None

PATIENT
  Sex: Male

DRUGS (3)
  1. ABIRATERONE ACETATE [Suspect]
     Active Substance: ABIRATERONE ACETATE
     Indication: Prostate cancer
     Dosage: FREQUENCY : DAILY;?
     Route: 048
     Dates: start: 202308
  2. ZYTIGA [Concomitant]
     Active Substance: ABIRATERONE ACETATE
  3. CAPECITABINE [Concomitant]
     Active Substance: CAPECITABINE

REACTIONS (2)
  - Cerebrovascular accident [None]
  - Pneumonia [None]
